FAERS Safety Report 5924938-9 (Version None)
Quarter: 2008Q4

REPORT INFORMATION
  Report Type: 
  Country: None (occurrence: None)
  Receive Date: 20081020
  Receipt Date: 20081020
  Transmission Date: 20090506
  Serious: Yes (Hospitalization)
  Sender: FDA-Public Use
  Company Number: None

PATIENT
  Age: 84 Year
  Sex: Female

DRUGS (3)
  1. WARFARIN SODIUM [Suspect]
     Indication: ATRIAL FIBRILLATION
  2. ASPIRIN [Suspect]
     Indication: ATRIAL FIBRILLATION
  3. PIROXICAM [Suspect]
     Indication: ARTHRITIS

REACTIONS (7)
  - ABNORMAL FAECES [None]
  - ATRIAL FIBRILLATION [None]
  - DIARRHOEA [None]
  - DYSSTASIA [None]
  - INTERNATIONAL NORMALISED RATIO INCREASED [None]
  - SMALL INTESTINAL HAEMORRHAGE [None]
  - SYNCOPE [None]
